FAERS Safety Report 16668483 (Version 1)
Quarter: 2019Q3

REPORT INFORMATION
  Report Type: Spontaneous
  Country: PR (occurrence: PR)
  Receive Date: 20190805
  Receipt Date: 20190805
  Transmission Date: 20191004
  Serious: No
  Sender: FDA-Public Use
  Company Number: PR-PFIZER INC-2019331123

PATIENT
  Age: 56 Year
  Sex: Female
  Weight: 69.84 kg

DRUGS (2)
  1. GABAPENTIN. [Suspect]
     Active Substance: GABAPENTIN
     Indication: PAIN
     Dosage: UNK, 3X/DAY
  2. GABAPENTIN. [Suspect]
     Active Substance: GABAPENTIN
     Dosage: 1200 MG, UNK

REACTIONS (4)
  - Off label use [Unknown]
  - Overdose [Unknown]
  - Rash [Unknown]
  - Product use in unapproved indication [Unknown]
